FAERS Safety Report 21977599 (Version 1)
Quarter: 2023Q1

REPORT INFORMATION
  Report Type: Spontaneous
  Country: DE (occurrence: DE)
  Receive Date: 20230210
  Receipt Date: 20230210
  Transmission Date: 20230418
  Serious: Yes (Death, Hospitalization)
  Sender: FDA-Public Use
  Company Number: DE-MYLANLABS-2023M1012653

PATIENT
  Age: 61 Year
  Sex: Male

DRUGS (3)
  1. TRANEXAMIC ACID [Suspect]
     Active Substance: TRANEXAMIC ACID
     Indication: Coagulation factor decreased
     Dosage: UNK; INTRAVENOUS (NOT SPECIFIED)
     Route: 042
  2. FIBRINOGEN [Suspect]
     Active Substance: FIBRINOGEN HUMAN
     Indication: Coagulation factor decreased
     Dosage: UNK; INTRAVENOUS (NOT SPECIFIED)
     Route: 042
  3. VITAMIN K [Suspect]
     Active Substance: PHYTONADIONE
     Indication: Coagulation factor decreased
     Dosage: UNK; INTRAVENOUS (NOT SPECIFIED)
     Route: 042

REACTIONS (5)
  - Disseminated intravascular coagulation [Fatal]
  - Cerebral infarction [Fatal]
  - Cerebellar infarction [Fatal]
  - Hypofibrinogenaemia [Unknown]
  - Thrombocytopenia [Unknown]
